FAERS Safety Report 11693039 (Version 1)
Quarter: 2015Q4

REPORT INFORMATION
  Report Type: Spontaneous
  Country: US (occurrence: None)
  Receive Date: 20151102
  Receipt Date: 20151102
  Transmission Date: 20160304
  Serious: Yes (Disabling)
  Sender: FDA-Public Use
  Company Number: None

PATIENT
  Age: 83 Year
  Sex: Female
  Weight: 47.63 kg

DRUGS (2)
  1. OMNIPRED [Suspect]
     Active Substance: PREDNISOLONE ACETATE
     Indication: CATARACT OPERATION
     Route: 047
     Dates: start: 20150505, end: 20150630
  2. CALCIUM [Concomitant]
     Active Substance: CALCIUM

REACTIONS (6)
  - Weight decreased [None]
  - Fatigue [None]
  - Musculoskeletal stiffness [None]
  - Headache [None]
  - Nausea [None]
  - Myopathy [None]
